FAERS Safety Report 23312493 (Version 4)
Quarter: 2024Q1

REPORT INFORMATION
  Report Type: Report from Study
  Country: CA (occurrence: CA)
  Receive Date: 20231219
  Receipt Date: 20240213
  Transmission Date: 20240410
  Serious: Yes (Hospitalization, Other)
  Sender: FDA-Public Use
  Company Number: CA-JNJFOC-20231229678

PATIENT
  Age: 68 Year
  Sex: Male
  Weight: 81.72 kg

DRUGS (2)
  1. SIMPONI [Suspect]
     Active Substance: GOLIMUMAB
     Indication: Colitis ulcerative
     Route: 058
     Dates: start: 20170703
  2. MESALAMINE [Suspect]
     Active Substance: MESALAMINE
     Route: 048
     Dates: start: 20231203

REACTIONS (3)
  - Colitis [Not Recovered/Not Resolved]
  - Rectal haemorrhage [Recovering/Resolving]
  - Off label use [Unknown]

NARRATIVE: CASE EVENT DATE: 20231210
